FAERS Safety Report 5052276-8 (Version None)
Quarter: 2006Q2

REPORT INFORMATION
  Report Type: 
  Country: None (occurrence: None)
  Receive Date: 20060614
  Receipt Date: 20060223
  Transmission Date: 20061013
  Serious: Yes (Other)
  Sender: FDA-Public Use
  Company Number: 437961

PATIENT
  Age: 76 Year
  Sex: Female
  Weight: 70.3 kg

DRUGS (4)
  1. BONIVA [Suspect]
     Indication: BONE DISORDER
     Dosage: ORAL
     Route: 048
     Dates: start: 20060102
  2. ASPIRIN [Concomitant]
  3. CALCIUM/ VITAMIN D (CALCIUM/ VITAMIN D NOS) [Concomitant]
  4. VITAMIN (VITAMIN NOS) [Concomitant]

REACTIONS (12)
  - ANOREXIA [None]
  - ARTHRALGIA [None]
  - BACK PAIN [None]
  - BODY TEMPERATURE INCREASED [None]
  - CHILLS [None]
  - FATIGUE [None]
  - MUSCULOSKELETAL CHEST PAIN [None]
  - MUSCULOSKELETAL STIFFNESS [None]
  - NAUSEA [None]
  - NECK PAIN [None]
  - SHOULDER PAIN [None]
  - SOMNOLENCE [None]
